FAERS Safety Report 7605165-6 (Version None)
Quarter: 2011Q3

REPORT INFORMATION
  Report Type: 
  Country: None (occurrence: None)
  Receive Date: 20110713
  Receipt Date: 20110627
  Transmission Date: 20111222
  Serious: Yes (Hospitalization, Other)
  Sender: FDA-Public Use
  Company Number: US-BAYER-200937624NA

PATIENT
  Age: 83 Year
  Sex: Male
  Weight: 71.455 kg

DRUGS (14)
  1. NORVASC [Concomitant]
     Route: 048
  2. BENADRYL [Concomitant]
     Route: 048
  3. DIOVAN [Concomitant]
     Route: 048
  4. CENTRUM SILVER [Concomitant]
     Dosage: ONE ONCE A DAY
     Route: 048
  5. MEGACE [Concomitant]
     Indication: DECREASED APPETITE
     Dosage: TAKE 800 MG (20 ML)
     Route: 048
  6. VICODIN [Concomitant]
     Indication: PAIN
     Dosage: EVERY 6 HOURS AS NEEDED - AS USED DOSE: 5-500 MG
     Route: 048
  7. NEXAVAR [Suspect]
     Route: 048
     Dates: end: 20091122
  8. NEXAVAR [Suspect]
     Route: 048
     Dates: start: 20091216
  9. NAPROXEN (ALEVE) [Concomitant]
     Dosage: RARELY TAKEN
     Route: 048
  10. CIPROFLOXACIN HCL [Concomitant]
     Route: 048
  11. NEXAVAR [Suspect]
     Indication: METASTATIC RENAL CELL CARCINOMA
     Route: 048
     Dates: start: 20091015, end: 20091027
  12. ATIVAN [Concomitant]
     Dosage: TAKE 1 MG ON ARRIVAL TO MRI APPT AND MAY REPEAT IF NEEDED IN 30 MINUTES
     Route: 048
  13. CLOBETASOL PROPIONATE [Concomitant]
     Dosage: APPLY TO AFFECTED AREA
  14. ZANTAC [Concomitant]
     Route: 048

REACTIONS (22)
  - HEART RATE INCREASED [None]
  - DEHYDRATION [None]
  - DYSPHONIA [None]
  - PALMAR-PLANTAR ERYTHRODYSAESTHESIA SYNDROME [None]
  - FLANK PAIN [None]
  - HYPOPHAGIA [None]
  - GASTROOESOPHAGEAL REFLUX DISEASE [None]
  - PLATELET COUNT DECREASED [None]
  - DIARRHOEA [None]
  - DECREASED APPETITE [None]
  - PAIN IN EXTREMITY [None]
  - SKIN LESION [None]
  - SKIN ULCER [None]
  - ARTHRALGIA [None]
  - PLEURITIC PAIN [None]
  - PRURITUS [None]
  - DYSPNOEA [None]
  - DIZZINESS [None]
  - ABDOMINAL DISTENSION [None]
  - ASTHENIA [None]
  - NAUSEA [None]
  - HYPOTENSION [None]
